FAERS Safety Report 4919112-9 (Version None)
Quarter: 2006Q1

REPORT INFORMATION
  Report Type: 
  Country: None (occurrence: None)
  Receive Date: 20060216
  Receipt Date: 20060207
  Transmission Date: 20060701
  Serious: Yes (Death, Other)
  Sender: FDA-Public Use
  Company Number: 163-20785-04090250

PATIENT
  Age: 56 Year
  Sex: Female
  Weight: 52.5 kg

DRUGS (6)
  1. THALOMID [Suspect]
     Indication: MULTIPLE MYELOMA
     Dosage: 50 MG, DAILY, ORAL; 100 MG, DAILY, ORAL; 100 MG, DAILY, ORAL
     Route: 048
     Dates: start: 20040729, end: 20040801
  2. THALOMID [Suspect]
     Indication: MULTIPLE MYELOMA
     Dosage: 50 MG, DAILY, ORAL; 100 MG, DAILY, ORAL; 100 MG, DAILY, ORAL
     Route: 048
     Dates: start: 20040801, end: 20050310
  3. THALOMID [Suspect]
     Indication: MULTIPLE MYELOMA
     Dosage: 50 MG, DAILY, ORAL; 100 MG, DAILY, ORAL; 100 MG, DAILY, ORAL
     Route: 048
     Dates: start: 20051117, end: 20051125
  4. THALOMID [Suspect]
  5. THALOMID [Suspect]
  6. DEXAMETHASONE [Suspect]
     Indication: MULTIPLE MYELOMA

REACTIONS (11)
  - BLOOD ALBUMIN DECREASED [None]
  - HAEMATOCRIT DECREASED [None]
  - HAEMOGLOBIN DECREASED [None]
  - HUMERUS FRACTURE [None]
  - LYMPHADENOPATHY [None]
  - MULTIPLE MYELOMA [None]
  - PATHOLOGICAL FRACTURE [None]
  - PNEUMONIA ESCHERICHIA [None]
  - PRODUCTIVE COUGH [None]
  - RIB FRACTURE [None]
  - SEPSIS [None]
